FAERS Safety Report 25948822 (Version 1)
Quarter: 2025Q4

REPORT INFORMATION
  Report Type: Spontaneous
  Country: CA (occurrence: CA)
  Receive Date: 20251022
  Receipt Date: 20251022
  Transmission Date: 20260117
  Serious: Yes (Hospitalization)
  Sender: BAUSCH AND LOMB
  Company Number: CA-BAUSCH-BH-2025-018894

PATIENT

DRUGS (3)
  1. PENICILLAMINE [Suspect]
     Active Substance: PENICILLAMINE
     Indication: Hepato-lenticular degeneration
     Route: 065
  2. TRIENTINE [Suspect]
     Active Substance: TRIENTINE
     Indication: Hepato-lenticular degeneration
     Dosage: NOT SPECIFIED
     Route: 065
  3. ZINC [Suspect]
     Active Substance: ZINC
     Indication: Hepato-lenticular degeneration
     Dosage: NOT SPECIFIED
     Route: 065

REACTIONS (2)
  - Drug intolerance [Unknown]
  - Drug ineffective [Unknown]
